FAERS Safety Report 18873171 (Version 2)
Quarter: 2021Q2

REPORT INFORMATION
  Report Type: Spontaneous
  Country: US (occurrence: US)
  Receive Date: 20210210
  Receipt Date: 20210507
  Transmission Date: 20210717
  Serious: No
  Sender: FDA-Public Use
  Company Number: US-BAYER-2021-058132

PATIENT
  Age: 31 Year
  Sex: Female
  Weight: 92.1 kg

DRUGS (2)
  1. KYLEENA [Suspect]
     Active Substance: LEVONORGESTREL
     Indication: CONTRACEPTION
     Dosage: 17.5?G PER DAY, CONTINUOUSLY
     Route: 015
     Dates: start: 201902, end: 20210128
  2. BUSPIRONE [Concomitant]
     Active Substance: BUSPIRONE HYDROCHLORIDE
     Indication: ANXIETY

REACTIONS (5)
  - Device expulsion [Recovered/Resolved]
  - Pelvic pain [Recovered/Resolved]
  - Depression [None]
  - Device issue [None]
  - Anxiety [None]

NARRATIVE: CASE EVENT DATE: 202101
